FAERS Safety Report 5420443-7 (Version None)
Quarter: 2007Q3

REPORT INFORMATION
  Report Type: 
  Country: None (occurrence: None)
  Receive Date: 20070816
  Receipt Date: 20070806
  Transmission Date: 20080115
  Serious: Yes (Other)
  Sender: FDA-Public Use
  Company Number: US020952

PATIENT
  Age: 59 Year
  Sex: Male
  Weight: 90.7194 kg

DRUGS (5)
  1. PROVIGIL [Suspect]
     Indication: NARCOLEPSY
     Dosage: 400 MG QD ORAL
     Route: 048
     Dates: start: 20040101, end: 20040101
  2. PROVIGIL [Suspect]
     Indication: NARCOLEPSY
     Dosage: 400 MG BID ORAL
     Route: 048
     Dates: start: 20040101
  3. RITALN [Concomitant]
  4. AMPHETAMINE AND DEXTROAMPHETAMINE SALTS [Concomitant]
  5. DESOXYN [Concomitant]

REACTIONS (6)
  - BACK PAIN [None]
  - BLOOD CHOLESTEROL INCREASED [None]
  - CONDITION AGGRAVATED [None]
  - CORONARY ARTERY DISEASE [None]
  - DRUG INEFFECTIVE [None]
  - HYPERTENSION [None]
